FAERS Safety Report 16668051 (Version 4)
Quarter: 2020Q1

REPORT INFORMATION
  Report Type: Spontaneous
  Country: US (occurrence: US)
  Receive Date: 20190805
  Receipt Date: 20200312
  Transmission Date: 20200409
  Serious: Yes (Hospitalization, Other)
  Sender: FDA-Public Use
  Company Number: US-JNJFOC-20190741676

PATIENT
  Sex: Male
  Weight: 78.09 kg

DRUGS (11)
  1. INVEGA [Suspect]
     Active Substance: PALIPERIDONE
     Route: 048
     Dates: start: 2018
  2. NYSTATIN. [Concomitant]
     Active Substance: NYSTATIN
  3. MELATONIN [Concomitant]
     Active Substance: MELATONIN
     Indication: INSOMNIA
  4. INVEGA SUSTENNA [Suspect]
     Active Substance: PALIPERIDONE PALMITATE
     Indication: SCHIZOPHRENIA
     Route: 030
     Dates: start: 2006
  5. NEXIUM [Concomitant]
     Active Substance: ESOMEPRAZOLE MAGNESIUM
     Indication: GASTROOESOPHAGEAL REFLUX DISEASE
  6. VITAMIN D3 [Concomitant]
     Active Substance: CHOLECALCIFEROL
     Indication: INSOMNIA
  7. INVEGA [Suspect]
     Active Substance: PALIPERIDONE
     Route: 048
  8. BENZTROPINE. [Concomitant]
     Active Substance: BENZTROPINE
  9. INVEGA [Suspect]
     Active Substance: PALIPERIDONE
     Indication: SCHIZOPHRENIA
     Route: 048
     Dates: start: 2004
  10. INVEGA [Suspect]
     Active Substance: PALIPERIDONE
     Route: 048
  11. CALOMEL. [Concomitant]
     Active Substance: CALOMEL

REACTIONS (19)
  - Hypothyroidism [Unknown]
  - Paraesthesia [Unknown]
  - Inappropriate schedule of product administration [Unknown]
  - Bipolar disorder [Unknown]
  - Sensitive skin [Unknown]
  - Metabolic disorder [Unknown]
  - Temperature intolerance [Unknown]
  - Therapeutic product effect decreased [Unknown]
  - Pancreatic enlargement [Unknown]
  - Malaise [Unknown]
  - Pain in extremity [Unknown]
  - Bladder disorder [Unknown]
  - Off label use [Unknown]
  - Autism spectrum disorder [Unknown]
  - Schizophrenia [Unknown]
  - Obsessive-compulsive disorder [Unknown]
  - Pruritus [Unknown]
  - Nausea [Unknown]
  - Cerebral disorder [Unknown]

NARRATIVE: CASE EVENT DATE: 2006
